FAERS Safety Report 15744049 (Version 1)
Quarter: 2018Q4

REPORT INFORMATION
  Report Type: Spontaneous
  Country: ES (occurrence: ES)
  Receive Date: 20181220
  Receipt Date: 20181220
  Transmission Date: 20190205
  Serious: Yes (Other)
  Sender: FDA-Public Use
  Company Number: ES-009507513-1812ESP007202

PATIENT
  Age: 68 Year
  Sex: Female

DRUGS (3)
  1. CELESTONE CRONODOSE [Suspect]
     Active Substance: BETAMETHASONE
     Indication: SCIATICA
     Dosage: 2 ML EVERY 15 DAYS
     Route: 030
     Dates: start: 20181011, end: 20181011
  2. PREGABALIN. [Concomitant]
     Active Substance: PREGABALIN
     Indication: SCIATICA
     Dosage: 50 MILLIGRAM, Q8H
     Route: 048
     Dates: start: 20180919, end: 20181004
  3. BALZAK PLUS [Concomitant]
     Active Substance: AMLODIPINE BESYLATE\HYDROCHLOROTHIAZIDE\OLMESARTAN MEDOXOMIL
     Indication: HYPERTENSION
     Dosage: 1 DOSAGE FORM, QD
     Route: 048
     Dates: start: 20180511

REACTIONS (1)
  - Thrombophlebitis [Recovered/Resolved]

NARRATIVE: CASE EVENT DATE: 20181020
